FAERS Safety Report 14564828 (Version 2)
Quarter: 2018Q1

REPORT INFORMATION
  Report Type: Report from Study
  Country: KR (occurrence: KR)
  Receive Date: 20180223
  Receipt Date: 20180303
  Transmission Date: 20180509
  Serious: Yes (Hospitalization)
  Sender: FDA-Public Use
  Company Number: KR-BAXTER-2018BAX005304

PATIENT
  Age: 56 Year
  Sex: Male
  Weight: 58.8 kg

DRUGS (18)
  1. CALCIUM CARBONATE. [Concomitant]
     Active Substance: CALCIUM CARBONATE
     Indication: PROPHYLAXIS
     Route: 048
     Dates: start: 20161005
  2. DIAMICRON MR [Concomitant]
     Active Substance: GLICLAZIDE
     Indication: DIABETES MELLITUS
     Route: 048
     Dates: start: 20141224
  3. DILADOL [Concomitant]
     Indication: HYPERTENSION
     Route: 048
     Dates: start: 20161005
  4. LANSTON LFDT [Concomitant]
     Active Substance: LANSOPRAZOLE
     Indication: PROPHYLAXIS
     Route: 048
     Dates: start: 20141121
  5. EXTRANEAL [Suspect]
     Active Substance: CALCIUM CHLORIDE\ICODEXTRIN\MAGNESIUM CHLORIDE\SODIUM CHLORIDE\SODIUM LACTATE
     Indication: CHRONIC KIDNEY DISEASE
     Dosage: 1 BAG OF 2L
     Route: 033
     Dates: start: 20180109
  6. ADALAT [Concomitant]
     Active Substance: NIFEDIPINE
     Indication: HYPERTENSION
     Route: 048
     Dates: start: 20170822
  7. MIRCERA [Concomitant]
     Active Substance: METHOXY POLYETHYLENE GLYCOL-EPOETIN BETA
     Indication: CHRONIC KIDNEY DISEASE
     Route: 058
     Dates: start: 20180215, end: 20180215
  8. ADALAT [Concomitant]
     Active Substance: NIFEDIPINE
     Route: 048
     Dates: start: 20170822, end: 20180215
  9. LASIX [Concomitant]
     Active Substance: FUROSEMIDE
     Indication: CHRONIC KIDNEY DISEASE
     Route: 048
     Dates: start: 20170214
  10. MUTERAN [Concomitant]
     Active Substance: ACETYLCYSTEINE
     Indication: SPUTUM ABNORMAL
     Route: 048
     Dates: start: 20180217
  11. PHYSIONEAL 2.5% [Suspect]
     Active Substance: CALCIUM CHLORIDE\DEXTROSE\MAGNESIUM CHLORIDE\SODIUM CHLORIDE SOLUTION
     Indication: CHRONIC KIDNEY DISEASE
     Dosage: 1 BAG OF 2L
     Route: 033
     Dates: start: 20180109, end: 20180212
  12. THIOCTACID HR [Concomitant]
     Indication: DIABETES MELLITUS
     Route: 048
     Dates: start: 20141121
  13. TRAJENTA [Concomitant]
     Active Substance: LINAGLIPTIN
     Indication: DIABETES MELLITUS
     Route: 048
     Dates: start: 20140807
  14. FEROBA-U SR [Concomitant]
     Indication: MINERAL SUPPLEMENTATION
     Route: 048
     Dates: start: 20160420
  15. SEVIKAR [Concomitant]
     Active Substance: AMLODIPINE BESYLATE\OLMESARTAN MEDOXOMIL
     Indication: HYPERTENSION
     Dosage: 1 TABLET
     Route: 048
     Dates: start: 20161228
  16. CITRACAL-D [Concomitant]
     Indication: CHRONIC KIDNEY DISEASE
     Dosage: 1 TABLET DAILY
     Route: 048
     Dates: start: 20141224
  17. MOTILITONE [Concomitant]
     Active Substance: HERBALS
     Indication: PROPHYLAXIS
     Route: 048
     Dates: start: 20160726
  18. NEPH-VITA [Concomitant]
     Indication: VITAMIN SUPPLEMENTATION
     Dosage: 1 TABLET
     Route: 048
     Dates: start: 20141122

REACTIONS (1)
  - Decreased appetite [Recovered/Resolved]

NARRATIVE: CASE EVENT DATE: 20180116
